FAERS Safety Report 9127896 (Version 4)
Quarter: 2013Q4

REPORT INFORMATION
  Report Type: Report from Study
  Country: CA (occurrence: CA)
  Receive Date: 20130228
  Receipt Date: 20131121
  Transmission Date: 20140711
  Serious: Yes (Hospitalization, Other)
  Sender: FDA-Public Use
  Company Number: CA-JNJFOC-20130214094

PATIENT
  Age: 43 Year
  Sex: Female
  Weight: 66.23 kg

DRUGS (3)
  1. SIMPONI [Suspect]
     Indication: PSORIATIC ARTHROPATHY
     Route: 065
     Dates: start: 20111110, end: 201305
  2. PREDNISONE [Concomitant]
     Route: 048
  3. MTX [Concomitant]
     Route: 058
     Dates: end: 201302

REACTIONS (7)
  - Myocardial infarction [Unknown]
  - Ischaemic stroke [Unknown]
  - Pulmonary embolism [Unknown]
  - Ovarian cancer [Unknown]
  - Endometrial cancer [Unknown]
  - Vaginal haemorrhage [Unknown]
  - Adverse event [Unknown]
